FAERS Safety Report 11030758 (Version 1)
Quarter: 2015Q2

REPORT INFORMATION
  Report Type: Spontaneous
  Country: US (occurrence: None)
  Receive Date: 20150414
  Receipt Date: 20150414
  Transmission Date: 20150821
  Serious: No
  Sender: FDA-Public Use
  Company Number: None

PATIENT
  Age: 18 Year
  Sex: Female

DRUGS (1)
  1. SULFAMETHOXAZOLE/TMP DS [Suspect]
     Active Substance: SULFAMETHOXAZOLE\TRIMETHOPRIM
     Indication: ACNE
     Dosage: 800/160 BID PO
     Route: 048
     Dates: start: 20150321

REACTIONS (1)
  - Product contamination physical [None]

NARRATIVE: CASE EVENT DATE: 20150411
